FAERS Safety Report 8258114-4 (Version None)
Quarter: 2012Q2

REPORT INFORMATION
  Report Type: 
  Country: None (occurrence: None)
  Receive Date: 20120404
  Receipt Date: 20120327
  Transmission Date: 20120825
  Serious: Yes (Other)
  Sender: FDA-Public Use
  Company Number: JP-JNJFOC-20120300677

PATIENT
  Sex: Female
  Weight: 33 kg

DRUGS (11)
  1. FULMETA [Concomitant]
     Indication: PSORIASIS
     Route: 061
  2. FOLIC ACID [Concomitant]
  3. ALENDRONATE SODIUM [Concomitant]
     Route: 048
  4. HEPARIN [Concomitant]
     Indication: PSORIASIS
     Route: 061
  5. STELARA [Suspect]
     Route: 058
     Dates: start: 20110805
  6. METHOTREXATE [Concomitant]
     Route: 048
  7. OXAROL [Concomitant]
     Indication: PSORIASIS
     Route: 061
  8. STELARA [Suspect]
     Route: 058
     Dates: start: 20110906
  9. HYDROCORTISONE BUTYRATE [Concomitant]
     Indication: PSORIASIS
     Route: 061
  10. STELARA [Suspect]
     Indication: PSORIASIS
     Route: 058
     Dates: start: 20120313
  11. STELARA [Suspect]
     Route: 058
     Dates: start: 20111129

REACTIONS (1)
  - IRON DEFICIENCY ANAEMIA [None]
